FAERS Safety Report 19682808 (Version 3)
Quarter: 2021Q3

REPORT INFORMATION
  Report Type: Spontaneous
  Country: US (occurrence: US)
  Receive Date: 20210811
  Receipt Date: 20210904
  Transmission Date: 20211014
  Serious: Yes (Other)
  Sender: FDA-Public Use
  Company Number: US-ROCHE-2884037

PATIENT
  Sex: Female
  Weight: 49.49 kg

DRUGS (9)
  1. RITUXAN [Suspect]
     Active Substance: RITUXIMAB
     Indication: RHEUMATOID ARTHRITIS
     Dosage: LAST INFUSION WAS ON 19/JUL/2021
     Route: 042
     Dates: start: 2006
  2. ZYRTEC (UNITED STATES) [Concomitant]
     Dosage: YES
  3. ALLEGRA [Concomitant]
     Active Substance: FEXOFENADINE HYDROCHLORIDE
     Dosage: YES
  4. RITUXAN [Suspect]
     Active Substance: RITUXIMAB
     Indication: SYSTEMIC LUPUS ERYTHEMATOSUS
     Route: 042
  5. RITUXAN [Suspect]
     Active Substance: RITUXIMAB
     Dosage: YES
     Route: 042
  6. MONTELUKAST [Concomitant]
     Active Substance: MONTELUKAST SODIUM
     Indication: HYPERSENSITIVITY
     Dosage: 1 DOSE ;ONGOING: YES
  7. TYLENOL [Concomitant]
     Active Substance: ACETAMINOPHEN
  8. BENADRYL [Concomitant]
     Active Substance: DIPHENHYDRAMINE HYDROCHLORIDE
  9. PEPCID [Concomitant]
     Active Substance: FAMOTIDINE
     Dosage: ONE WEEK PRIOR TO RITUXAN INFUSIONS ;ONGOING: YES

REACTIONS (14)
  - Illness [Unknown]
  - Antiphospholipid syndrome [Unknown]
  - Throat tightness [Recovered/Resolved]
  - Ear pruritus [Recovered/Resolved]
  - Migraine [Unknown]
  - Disease susceptibility [Unknown]
  - Immunodeficiency [Not Recovered/Not Resolved]
  - Off label use [Unknown]
  - Drug intolerance [Unknown]
  - Impaired work ability [Unknown]
  - Nausea [Not Recovered/Not Resolved]
  - Vomiting [Not Recovered/Not Resolved]
  - International normalised ratio increased [Unknown]
  - Systemic lupus erythematosus [Unknown]

NARRATIVE: CASE EVENT DATE: 2019
